FAERS Safety Report 8556726-1 (Version None)
Quarter: 2012Q3

REPORT INFORMATION
  Report Type: 
  Country: None (occurrence: None)
  Receive Date: 20120801
  Receipt Date: 20120727
  Transmission Date: 20120928
  Serious: Yes (Hospitalization, Other)
  Sender: FDA-Public Use
  Company Number: CL-PFIZER INC-2012182735

PATIENT
  Age: 70 Year
  Sex: Female

DRUGS (1)
  1. PHENYTOIN SODIUM [Suspect]
     Dosage: UNK
     Route: 048

REACTIONS (2)
  - RASH PRURITIC [None]
  - APLASTIC ANAEMIA [None]
